APPROVED DRUG PRODUCT: TERRAMYCIN
Active Ingredient: LIDOCAINE HYDROCHLORIDE; OXYTETRACYCLINE
Strength: 2%;50MG/ML
Dosage Form/Route: INJECTABLE;INJECTION
Application: A060567 | Product #001
Applicant: PFIZER LABORATORIES DIV PFIZER INC
Approved: Approved Prior to Jan 1, 1982 | RLD: No | RS: No | Type: DISCN